FAERS Safety Report 6367584-8 (Version None)
Quarter: 2009Q3

REPORT INFORMATION
  Report Type: 
  Country: None (occurrence: None)
  Receive Date: 20090921
  Receipt Date: 20090910
  Transmission Date: 20100115
  Serious: Yes (Death, Life-Threatening, Other)
  Sender: FDA-Public Use
  Company Number: US-BAXTER-2009BH006624

PATIENT
  Age: 55 Year
  Sex: Female
  Weight: 62 kg

DRUGS (15)
  1. HEPARIN SODIUM INJECTION [Suspect]
     Indication: THROMBOSIS PROPHYLAXIS
     Route: 058
     Dates: start: 20080122, end: 20080129
  2. LISINOPRIL [Concomitant]
     Indication: HYPERTENSION
     Route: 048
  3. PROTONIX [Concomitant]
     Indication: DRUG USE FOR UNKNOWN INDICATION
     Route: 040
  4. FLAGYL [Concomitant]
     Indication: DRUG USE FOR UNKNOWN INDICATION
     Route: 042
  5. LEVAQUIN [Concomitant]
     Indication: DRUG USE FOR UNKNOWN INDICATION
     Route: 042
  6. PHENERGAN [Concomitant]
     Indication: DRUG USE FOR UNKNOWN INDICATION
     Route: 065
  7. POTASSIUM CHLORIDE/DEXTROSE/LACTATED RINGERS [Concomitant]
     Indication: DRUG USE FOR UNKNOWN INDICATION
     Route: 042
  8. DEMEROL [Concomitant]
     Indication: DRUG USE FOR UNKNOWN INDICATION
     Route: 042
  9. KEFZOL [Concomitant]
     Indication: PREOPERATIVE CARE
     Route: 042
  10. PRILOSEC [Concomitant]
     Indication: DRUG USE FOR UNKNOWN INDICATION
     Route: 065
  11. ANCEF [Concomitant]
     Indication: PREOPERATIVE CARE
     Route: 042
  12. TYLENOL (CAPLET) [Concomitant]
     Indication: DRUG USE FOR UNKNOWN INDICATION
     Route: 065
  13. SODIUM CHLORIDE [Concomitant]
     Indication: DRUG USE FOR UNKNOWN INDICATION
     Route: 065
  14. DULCOLAX [Concomitant]
     Indication: DRUG USE FOR UNKNOWN INDICATION
     Route: 065
  15. VASOTEC [Concomitant]
     Indication: DRUG USE FOR UNKNOWN INDICATION
     Route: 065

REACTIONS (25)
  - ADRENAL INSUFFICIENCY [None]
  - ANAEMIA [None]
  - AORTIC OCCLUSION [None]
  - ATRIAL FIBRILLATION [None]
  - CARDIAC ARREST [None]
  - CLOSTRIDIUM DIFFICILE COLITIS [None]
  - COLITIS ISCHAEMIC [None]
  - CONFUSIONAL STATE [None]
  - DELIRIUM [None]
  - GASTROINTESTINAL HAEMORRHAGE [None]
  - HAEMATOCHEZIA [None]
  - HEPARIN-INDUCED THROMBOCYTOPENIA [None]
  - HYPERGLYCAEMIA [None]
  - HYPONATRAEMIA [None]
  - INTESTINAL ISCHAEMIA [None]
  - LUNG INFECTION PSEUDOMONAL [None]
  - MESENTERIC ARTERY THROMBOSIS [None]
  - METABOLIC ACIDOSIS [None]
  - PNEUMOTHORAX [None]
  - RESPIRATORY FAILURE [None]
  - RETROPERITONEAL HAEMORRHAGE [None]
  - SEPSIS [None]
  - SHOCK [None]
  - SKIN DISORDER [None]
  - SKIN NECROSIS [None]
